FAERS Safety Report 4279687-2 (Version None)
Quarter: 2004Q1

REPORT INFORMATION
  Report Type: 
  Country: None (occurrence: None)
  Receive Date: 20040123
  Receipt Date: 20040119
  Transmission Date: 20041129
  Serious: Yes (Other)
  Sender: FDA-Public Use
  Company Number: TUK2004A00004

PATIENT
  Age: 59 Year

DRUGS (14)
  1. ACTOS [Suspect]
     Indication: DIABETES MELLITUS NON-INSULIN-DEPENDENT
     Dosage: 15 MG
     Route: 048
     Dates: start: 20030714
  2. LACIDIPINE (LACIDIPINE) [Concomitant]
  3. INDAPAMIDE [Concomitant]
  4. FEXOFENADINE HCL [Concomitant]
  5. THYROXINE (LEVOTHYROXINE SODIUM) [Concomitant]
  6. CO-PROXAMOL (APOREX) [Concomitant]
  7. ASPIRIN [Concomitant]
  8. MELOXICAM (MELOXICAM) [Concomitant]
  9. ATORVASTATIN (ATORVASTATIN) [Concomitant]
  10. GLIMEPIRIDE [Concomitant]
  11. FLUTICASONE PROPIONATE [Concomitant]
  12. SALBUTAMOL (SALBUTAMOL) [Concomitant]
  13. SYMBICORT (SYMBICORT TURBUHALER ^DRACO^) [Concomitant]
  14. IRBESARTAN [Concomitant]

REACTIONS (2)
  - HEMIANOPIA [None]
  - VISUAL DISTURBANCE [None]
